FAERS Safety Report 18597706 (Version 1)
Quarter: 2020Q4

REPORT INFORMATION
  Report Type: Spontaneous
  Country: US (occurrence: US)
  Receive Date: 20201209
  Receipt Date: 20201209
  Transmission Date: 20210114
  Serious: No
  Sender: FDA-Public Use
  Company Number: US-INSUD PHARMA-2011US00253

PATIENT
  Age: 43 Year
  Sex: Female

DRUGS (4)
  1. MONTELUKAST [Concomitant]
     Active Substance: MONTELUKAST SODIUM
     Dosage: UNK
  2. SLYND [Suspect]
     Active Substance: DROSPIRENONE
     Indication: MENORRHAGIA
     Dosage: ONCE DAILY
     Route: 048
     Dates: start: 20201101
  3. CLARITIN [Concomitant]
     Active Substance: LORATADINE
     Dosage: OTC
  4. NASAL SPRAY [Concomitant]
     Active Substance: UNSPECIFIED INGREDIENT
     Dosage: OTC

REACTIONS (3)
  - Intentional product use issue [Unknown]
  - Breast tenderness [Not Recovered/Not Resolved]
  - Condition aggravated [Not Recovered/Not Resolved]

NARRATIVE: CASE EVENT DATE: 20201101
